FAERS Safety Report 8470737-6 (Version None)
Quarter: 2012Q2

REPORT INFORMATION
  Report Type: 
  Country: None (occurrence: None)
  Receive Date: 20120627
  Receipt Date: 20120608
  Transmission Date: 20120825
  Serious: No
  Sender: FDA-Public Use
  Company Number: US-B.I. PHARMACEUTICALS,INC./RIDGEFIELD-2012-BP-13535BP

PATIENT
  Sex: Female
  Weight: 90.72 kg

DRUGS (8)
  1. LIPITOR [Concomitant]
     Indication: BLOOD CHOLESTEROL INCREASED
  2. CELEBREX [Suspect]
     Indication: ARTHRALGIA
     Dosage: 200 MG
     Route: 048
     Dates: start: 20000101, end: 20020101
  3. CELEBREX [Suspect]
     Indication: JOINT INJURY
     Dosage: 400 MG
     Route: 048
     Dates: start: 20020101, end: 20030101
  4. MOBIC [Suspect]
     Indication: BACK DISORDER
     Dates: start: 20030101, end: 20030101
  5. UNSPECIFIED MEDICATION [Concomitant]
     Indication: HYPERTENSION
  6. NAPROXEN [Concomitant]
     Indication: BACK DISORDER
     Route: 048
     Dates: start: 20030101, end: 20030101
  7. PREVACID [Concomitant]
  8. IBUPROFEN [Concomitant]
     Indication: BACK DISORDER
     Dates: start: 20030101, end: 20030101

REACTIONS (3)
  - DRUG INEFFECTIVE [None]
  - ABDOMINAL PAIN UPPER [None]
  - DIARRHOEA [None]
